FAERS Safety Report 4771586-2 (Version None)
Quarter: 2005Q3

REPORT INFORMATION
  Report Type: 
  Country: None (occurrence: None)
  Receive Date: 20050913
  Receipt Date: 20050913
  Transmission Date: 20060218
  Serious: Yes (Hospitalization)
  Sender: FDA-Public Use
  Company Number: None

PATIENT
  Sex: Female
  Weight: 61.5531 kg

DRUGS (14)
  1. GEMCITABINE  100MG/ML LILLY [Suspect]
     Indication: PANCREATIC CARCINOMA
     Dosage: 1000MG/M2 D 1 + 15 IV DRIP
     Route: 041
     Dates: start: 20050325, end: 20050824
  2. CISPLATIN [Suspect]
     Indication: PANCREATIC CARCINOMA
     Dosage: 20MG/M2 D 1 + 15 IV DRIP
     Route: 041
     Dates: start: 20050325, end: 20050824
  3. BEVACIZUMAB 25MG/ML GENENTECH [Suspect]
     Indication: PANCREATIC CARCINOMA
     Dosage: 10MG/KG DAY 1 + 15 IV DRIP
     Route: 042
     Dates: start: 20050325, end: 20050824
  4. DURAGESIC-100 [Concomitant]
  5. LORAZEPAM [Concomitant]
  6. ARANESP [Concomitant]
  7. PERCOCET [Concomitant]
  8. ULTRASE MT [Concomitant]
  9. PROBIOTICS OMEPRAZOLE [Concomitant]
  10. ATENOLOL [Concomitant]
  11. CELEX [Concomitant]
  12. FISH OIL CAPS MVI [Concomitant]
  13. ZINC COLACE [Concomitant]
  14. DECRADON [Concomitant]

REACTIONS (1)
  - LARGE INTESTINAL OBSTRUCTION [None]
